FAERS Safety Report 17348380 (Version 1)
Quarter: 2020Q1

REPORT INFORMATION
  Report Type: Spontaneous
  Country: US (occurrence: US)
  Receive Date: 20200129
  Receipt Date: 20200129
  Transmission Date: 20200409
  Serious: No
  Sender: FDA-Public Use
  Company Number: None

PATIENT
  Age: 18 Month
  Sex: Male
  Weight: 11.25 kg

DRUGS (2)
  1. AMOXICILLIN AND CLAVULANATE POTASSIUM FOR ORAL SUSPENSION: AUGMENTIN [Suspect]
     Active Substance: AMOXICILLIN\CLAVULANATE POTASSIUM
     Indication: COUGH
     Dosage: ?          QUANTITY:1 ONE BOTTLE;?
     Route: 048
     Dates: start: 20200123, end: 20200129
  2. AMOXICILLIN AND CLAVULANATE POTASSIUM FOR ORAL SUSPENSION: AUGMENTIN [Suspect]
     Active Substance: AMOXICILLIN\CLAVULANATE POTASSIUM
     Indication: RHINORRHOEA
     Dosage: ?          QUANTITY:1 ONE BOTTLE;?
     Route: 048
     Dates: start: 20200123, end: 20200129

REACTIONS (2)
  - Product contamination microbial [None]
  - Exposure to fungus [None]

NARRATIVE: CASE EVENT DATE: 20200129
